FAERS Safety Report 15867926 (Version 1)
Quarter: 2019Q1

REPORT INFORMATION
  Report Type: Spontaneous
  Country: DE (occurrence: DE)
  Receive Date: 20190125
  Receipt Date: 20190125
  Transmission Date: 20190417
  Serious: Yes (Other)
  Sender: FDA-Public Use
  Company Number: PHHY2019DE013497

PATIENT
  Age: 90 Year
  Sex: Female
  Weight: 70 kg

DRUGS (4)
  1. LEVETIRACETAM HEXAL [Suspect]
     Active Substance: LEVETIRACETAM
     Dosage: 3 G, BID (1500 MG-0-1500 MG)
     Route: 048
     Dates: start: 20181210
  2. LEVETIRACETAM HEXAL [Suspect]
     Active Substance: LEVETIRACETAM
     Indication: EPILEPSY
     Dosage: 1000 MG, BID
     Route: 048
     Dates: start: 201812
  3. LEVETIRACETAM HEXAL [Suspect]
     Active Substance: LEVETIRACETAM
     Dosage: 2 G, QD
     Route: 048
     Dates: start: 20190109
  4. VIMPAT [Concomitant]
     Active Substance: LACOSAMIDE
     Indication: PRODUCT USED FOR UNKNOWN INDICATION
     Dosage: UNK
     Route: 065
     Dates: start: 20190109

REACTIONS (4)
  - Leukopenia [Unknown]
  - Neutrophil count decreased [Unknown]
  - Thrombocytopenia [Unknown]
  - Epilepsy [Unknown]

NARRATIVE: CASE EVENT DATE: 20181210
